FAERS Safety Report 4349034-6 (Version None)
Quarter: 2004Q2

REPORT INFORMATION
  Report Type: 
  Country: None (occurrence: None)
  Receive Date: 20040422
  Receipt Date: 20040407
  Transmission Date: 20050107
  Serious: Yes (Hospitalization)
  Sender: FDA-Public Use
  Company Number: 601212

PATIENT
  Age: 4 Year
  Sex: Male

DRUGS (2)
  1. GAMMAGARD S/D [Suspect]
     Dosage: 2 GR;PRN;INTRAVENOUS
     Route: 042
     Dates: start: 20040317, end: 20040317
  2. ANAESTHETICS [Concomitant]

REACTIONS (5)
  - BLOOD PRESSURE INCREASED [None]
  - CONVULSION [None]
  - FEBRILE CONVULSION [None]
  - OXYGEN SATURATION DECREASED [None]
  - VOMITING [None]
